FAERS Safety Report 5795470-0 (Version None)
Quarter: 2008Q2

REPORT INFORMATION
  Report Type: 
  Country: None (occurrence: None)
  Receive Date: 20080630
  Receipt Date: 20080619
  Transmission Date: 20081010
  Serious: Yes (Other)
  Sender: FDA-Public Use
  Company Number: GB-JNJFOC-20080604949

PATIENT
  Age: 7 Decade
  Sex: Male
  Weight: 90 kg

DRUGS (9)
  1. REMICADE [Suspect]
     Indication: RHEUMATOID ARTHRITIS
     Route: 042
  2. SULFASALAZINE [Concomitant]
  3. METHOTREXATE [Concomitant]
  4. PREDNISOLONE [Concomitant]
  5. ASPIRIN [Concomitant]
  6. FOLATE [Concomitant]
  7. LOSEC I.V. [Concomitant]
  8. TRAMADOL HCL [Concomitant]
  9. VOLTAREN [Concomitant]

REACTIONS (1)
  - CHEMICAL POISONING [None]
